FAERS Safety Report 12766645 (Version 4)
Quarter: 2016Q4

REPORT INFORMATION
  Report Type: Spontaneous
  Country: US (occurrence: US)
  Receive Date: 20160921
  Receipt Date: 20161122
  Transmission Date: 20170207
  Serious: Yes (Death, Other)
  Sender: FDA-Public Use
  Company Number: US-PFIZER INC-2016440795

PATIENT
  Age: 74 Year
  Sex: Male

DRUGS (5)
  1. SULINDAC. [Concomitant]
     Active Substance: SULINDAC
     Dosage: UNK
     Dates: start: 201402
  2. METOPROLOL. [Concomitant]
     Active Substance: METOPROLOL
     Dosage: UNK
     Dates: start: 201401
  3. XELJANZ [Suspect]
     Active Substance: TOFACITINIB CITRATE
     Dosage: 5 MG, 2X/DAY
     Dates: start: 201311
  4. GABAPENTIN. [Concomitant]
     Active Substance: GABAPENTIN
     Dosage: UNK
     Dates: start: 201205
  5. PREDNISONE. [Concomitant]
     Active Substance: PREDNISONE
     Dosage: UNK
     Dates: start: 200002

REACTIONS (6)
  - Lung infection [Not Recovered/Not Resolved]
  - Decreased appetite [Unknown]
  - Chest pain [Unknown]
  - Weight decreased [Unknown]
  - Death [Fatal]
  - Immune system disorder [Unknown]
